FAERS Safety Report 14189739 (Version 3)
Quarter: 2017Q4

REPORT INFORMATION
  Report Type: Report from Study
  Country: US (occurrence: US)
  Receive Date: 20171115
  Receipt Date: 20171222
  Transmission Date: 20180321
  Serious: No
  Sender: FDA-Public Use
  Company Number: US-AMGEN-USASL2017170832

PATIENT
  Age: 33 Year
  Sex: Male

DRUGS (1)
  1. ENBREL [Suspect]
     Active Substance: ETANERCEPT
     Indication: ANKYLOSING SPONDYLITIS
     Dosage: 50 MG, QWK
     Route: 058
     Dates: start: 201710

REACTIONS (8)
  - Injection site rash [Unknown]
  - Injection site swelling [Unknown]
  - Pain [Unknown]
  - Injection site reaction [Recovered/Resolved]
  - Injection site warmth [Unknown]
  - Fatigue [Unknown]
  - Injection site pain [Recovered/Resolved]
  - Injection site erythema [Unknown]

NARRATIVE: CASE EVENT DATE: 2017
